FAERS Safety Report 16459881 (Version 1)
Quarter: 2019Q2

REPORT INFORMATION
  Report Type: Spontaneous
  Country: US (occurrence: US)
  Receive Date: 20190620
  Receipt Date: 20190620
  Transmission Date: 20190711
  Serious: No
  Sender: FDA-Public Use
  Company Number: US-BAYER-2019-117788

PATIENT
  Sex: Male
  Weight: 10 kg

DRUGS (1)
  1. MIRALAX [Suspect]
     Active Substance: POLYETHYLENE GLYCOL 3350
     Indication: FUNCTIONAL GASTROINTESTINAL DISORDER
     Dosage: 1/4 TO 1/2 CAP
     Route: 048

REACTIONS (3)
  - Off label use [Unknown]
  - Diarrhoea [Unknown]
  - Product use in unapproved indication [None]
